FAERS Safety Report 8831985 (Version 1)
Quarter: 2012Q4

REPORT INFORMATION
  Report Type: 
  Country: US (occurrence: US)
  Receive Date: 20121009
  Receipt Date: 20121009
  Transmission Date: 20130627
  Serious: Yes (Other)
  Sender: FDA-Public Use
  Company Number: US-ROCHE-1138708

PATIENT
  Sex: Female

DRUGS (1)
  1. AVASTIN [Suspect]
     Indication: GLIOBLASTOMA
     Route: 042
     Dates: start: 201104

REACTIONS (6)
  - Disease progression [Unknown]
  - Amnesia [Unknown]
  - Hallucination [Unknown]
  - Pyrexia [Unknown]
  - Cerebrovascular accident [Unknown]
  - Headache [Unknown]
